FAERS Safety Report 10258116 (Version 2)
Quarter: 2014Q2

REPORT INFORMATION
  Report Type: Spontaneous
  Country: US (occurrence: US)
  Receive Date: 20140625
  Receipt Date: 20140625
  Transmission Date: 20141212
  Serious: Yes (Death, Life-Threatening, Hospitalization, Other)
  Sender: FDA-Public Use
  Company Number: PHHY2014US046025

PATIENT
  Sex: Male

DRUGS (11)
  1. BACLOFEN INTRATHECAL [Suspect]
     Indication: POST LAMINECTOMY SYNDROME
     Dosage: 205 UG, DAILY
     Route: 037
  2. BACLOFEN [Suspect]
     Dosage: UNK UKN, UNK
     Route: 048
  3. METHADONE [Suspect]
     Dosage: UNK UKN, UNK
  4. BUPIVACAINE [Suspect]
     Dosage: 11.418 MG/ML, UNK
     Route: 037
  5. CLONIDINE [Suspect]
     Dosage: 342.53 UG, DAY
     Route: 037
  6. FENTANYL [Suspect]
     Dosage: 14.272 MG, DAY
     Route: 037
  7. HYDROMORPHONE [Suspect]
     Dosage: 19.98 MG/ML, UNK
     Route: 037
  8. CYMBALTA [Suspect]
     Dosage: UNK UKN, UNK
     Route: 048
  9. REMERON [Suspect]
     Dosage: UNK UKN, UNK
  10. BACTRIM [Suspect]
     Dosage: UNK UKN, UNK
  11. MELATONIN [Suspect]
     Dosage: UNK UKN, UNK

REACTIONS (3)
  - Pneumonia aspiration [Fatal]
  - Unresponsive to stimuli [Unknown]
  - Pain [Unknown]
